FAERS Safety Report 5176035-0 (Version None)
Quarter: 2006Q4

REPORT INFORMATION
  Report Type: 
  Country: None (occurrence: None)
  Receive Date: 20061215
  Receipt Date: 20060703
  Transmission Date: 20070319
  Serious: No
  Sender: FDA-Public Use
  Company Number: US-AMGEN-KDL185089

PATIENT
  Sex: Female

DRUGS (2)
  1. ENBREL [Suspect]
     Indication: PSORIATIC ARTHROPATHY
     Route: 058
     Dates: start: 20050814
  2. ENBREL [Suspect]
     Indication: PSORIASIS

REACTIONS (5)
  - DRUG INEFFECTIVE [None]
  - FACIAL NERVE DISORDER [None]
  - LYMPHADENOPATHY [None]
  - PARAESTHESIA [None]
  - SKIN PAPILLOMA [None]
